FAERS Safety Report 8564224-4 (Version None)
Quarter: 2012Q3

REPORT INFORMATION
  Report Type: 
  Country: None (occurrence: None)
  Receive Date: 20120803
  Receipt Date: 20120730
  Transmission Date: 20120928
  Serious: Yes (Death, Hospitalization)
  Sender: FDA-Public Use
  Company Number: JP-JNJFOC-20120714905

PATIENT
  Sex: Female
  Weight: 40 kg

DRUGS (6)
  1. SIMPONI [Suspect]
     Indication: RHEUMATOID ARTHRITIS
     Route: 058
     Dates: start: 20120321
  2. BREDININ [Concomitant]
     Route: 048
     Dates: start: 20090811
  3. SIMPONI [Suspect]
     Route: 058
     Dates: end: 20120629
  4. SIMPONI [Suspect]
     Route: 058
     Dates: start: 20120222
  5. METHOTREXATE [Concomitant]
     Indication: RHEUMATOID ARTHRITIS
     Dates: start: 20100216
  6. SIMPONI [Suspect]
     Route: 058
     Dates: start: 20120418

REACTIONS (4)
  - ARRHYTHMIA [None]
  - CARDIAC FAILURE [None]
  - SYNCOPE [None]
  - PNEUMONIA [None]
